FAERS Safety Report 13661115 (Version 4)
Quarter: 2018Q2

REPORT INFORMATION
  Report Type: Spontaneous
  Country: SE (occurrence: SE)
  Receive Date: 20170616
  Receipt Date: 20180524
  Transmission Date: 20180711
  Serious: Yes (Death, Life-Threatening, Other)
  Sender: FDA-Public Use
  Company Number: SE-JNJFOC-20170612449

PATIENT
  Age: 20 Year
  Sex: Female

DRUGS (1)
  1. TRAMADOL HYDROCHLORIDE. [Suspect]
     Active Substance: TRAMADOL HYDROCHLORIDE
     Indication: PRODUCT USED FOR UNKNOWN INDICATION
     Route: 065

REACTIONS (4)
  - Brain oedema [Fatal]
  - Toxicity to various agents [Fatal]
  - Visceral congestion [Fatal]
  - Pulmonary oedema [Fatal]
